FAERS Safety Report 8180348-8 (Version None)
Quarter: 2012Q1

REPORT INFORMATION
  Report Type: 
  Country: None (occurrence: None)
  Receive Date: 20120302
  Receipt Date: 20120227
  Transmission Date: 20120608
  Serious: Yes (Other)
  Sender: FDA-Public Use
  Company Number: US-PFIZER INC-2012052496

PATIENT

DRUGS (3)
  1. SAW PALMETTO [Suspect]
  2. XARELTO [Suspect]
     Dosage: UNK
  3. CELEBREX [Suspect]
     Dosage: UNK

REACTIONS (1)
  - POST PROCEDURAL HAEMORRHAGE [None]
